FAERS Safety Report 18800249 (Version 1)
Quarter: 2021Q1

REPORT INFORMATION
  Report Type: Spontaneous
  Country: GB (occurrence: GB)
  Receive Date: 20210128
  Receipt Date: 20210128
  Transmission Date: 20210419
  Serious: Yes (Hospitalization)
  Sender: FDA-Public Use
  Company Number: GB-MYLANLABS-2021M1004991

PATIENT
  Age: 70 Year
  Sex: Female
  Weight: 66.67 kg

DRUGS (9)
  1. DOXYCYCLINE. [Suspect]
     Active Substance: DOXYCYCLINE
     Indication: SINUSITIS
     Dosage: STRENGTH: 50 AND 100 MG DOSE: 100 FREQUENCY: 2 CAP INITIALLY
     Route: 048
     Dates: start: 20180207, end: 20180207
  2. BECONASE AQ [Concomitant]
     Active Substance: BECLOMETHASONE DIPROPIONATE MONOHYDRATE
     Dosage: UNK
  3. LEVOTHYROXINE SODIUM. [Concomitant]
     Active Substance: LEVOTHYROXINE SODIUM
     Dosage: UNK
  4. DOXYCYCLINE ACCORD [Suspect]
     Active Substance: DOXYCYCLINE
     Indication: DRUG HYPERSENSITIVITY
     Dosage: STRENGTH: 50 AND 100 MG DOSE: 100 FREQUENCY: 2 CAP INITIALLY
     Route: 048
     Dates: start: 20180207, end: 20180207
  5. FLECAINIDE [Concomitant]
     Active Substance: FLECAINIDE
     Dosage: UNK
  6. FLUOXETINE [Concomitant]
     Active Substance: FLUOXETINE HYDROCHLORIDE
     Dosage: UNK
  7. LEVOTHYROXINE. [Concomitant]
     Active Substance: LEVOTHYROXINE
     Dosage: UNK
  8. XARELTO [Concomitant]
     Active Substance: RIVAROXABAN
     Dosage: UNK
  9. BISOPROLOL                         /00802602/ [Concomitant]
     Active Substance: BISOPROLOL
     Dosage: UNK

REACTIONS (3)
  - Nausea [Recovered/Resolved with Sequelae]
  - Vomiting [Recovered/Resolved with Sequelae]
  - Amnesia [Recovered/Resolved with Sequelae]

NARRATIVE: CASE EVENT DATE: 20180207
